FAERS Safety Report 13753097 (Version 1)
Quarter: 2017Q3

REPORT INFORMATION
  Report Type: Spontaneous
  Country: US (occurrence: US)
  Receive Date: 20170713
  Receipt Date: 20170713
  Transmission Date: 20171127
  Serious: No
  Sender: FDA-Public Use
  Company Number: None

PATIENT
  Age: 41 Year
  Sex: Female

DRUGS (1)
  1. BENLYSTA [Suspect]
     Active Substance: BELIMUMAB
     Indication: SYSTEMIC LUPUS ERYTHEMATOSUS
     Dosage: DOSAGE - INFUSE 1200MG?FREQUENCY - EVERY 2 WEEKS FOR 3 DOSES
     Route: 042
     Dates: start: 20170531, end: 20170628

REACTIONS (7)
  - Back pain [None]
  - Asthenia [None]
  - Pain [None]
  - Throat irritation [None]
  - Infusion related reaction [None]
  - Therapy cessation [None]
  - Dyspnoea [None]

NARRATIVE: CASE EVENT DATE: 20170531
